FAERS Safety Report 7081149-4 (Version None)
Quarter: 2010Q4

REPORT INFORMATION
  Report Type: 
  Country: None (occurrence: None)
  Receive Date: 20101103
  Receipt Date: 20101022
  Transmission Date: 20110411
  Serious: Yes (Hospitalization)
  Sender: FDA-Public Use
  Company Number: B0675656A

PATIENT
  Sex: Male

DRUGS (9)
  1. AVOLVE [Suspect]
     Indication: BENIGN PROSTATIC HYPERPLASIA
     Dosage: .5MG PER DAY
     Route: 048
     Dates: start: 20100616, end: 20100823
  2. AVOLVE [Suspect]
     Dosage: .5MG PER DAY
     Route: 048
     Dates: start: 20100906
  3. TAMSULOSIN HCL [Concomitant]
     Indication: BENIGN PROSTATIC HYPERPLASIA
     Dosage: .2MG PER DAY
     Route: 048
  4. TENORMIN [Concomitant]
     Dosage: 25MG PER DAY
     Route: 048
  5. PRAVASTATIN [Concomitant]
     Dosage: 10MG PER DAY
     Route: 048
  6. PALGIN [Concomitant]
     Dosage: 1MG PER DAY
     Route: 048
  7. SOLETON [Concomitant]
     Dosage: 80MG PER DAY
     Route: 048
  8. NIVADIL [Concomitant]
     Dosage: 2MG PER DAY
     Route: 048
  9. LEVOFLOXACIN [Concomitant]
     Dosage: 500MG PER DAY
     Dates: start: 20100916

REACTIONS (1)
  - PYREXIA [None]
